FAERS Safety Report 19478216 (Version 2)
Quarter: 2021Q3

REPORT INFORMATION
  Report Type: Spontaneous
  Country: FR (occurrence: FR)
  Receive Date: 20210630
  Receipt Date: 20210709
  Transmission Date: 20211014
  Serious: Yes (Life-Threatening, Disabling)
  Sender: FDA-Public Use
  Company Number: FR-PFIZER INC-2021704509

PATIENT
  Age: 54 Year
  Sex: Female
  Weight: 49 kg

DRUGS (6)
  1. PACLITAXEL HOSPIRA [Suspect]
     Active Substance: PACLITAXEL
     Indication: INVASIVE DUCTAL BREAST CARCINOMA
     Dosage: 1 DF, SINGLE ( 102 MG)
     Route: 041
     Dates: start: 20210525, end: 20210525
  2. PLITICAN [Concomitant]
     Active Substance: ALIZAPRIDE HYDROCHLORIDE
  3. PERTUZUMAB. [Concomitant]
     Active Substance: PERTUZUMAB
  4. METHYLPREDNISOLONE. [Concomitant]
     Active Substance: METHYLPREDNISOLONE
  5. HERCEPTIN [Concomitant]
     Active Substance: TRASTUZUMAB
  6. POLARAMINE [Concomitant]
     Active Substance: DEXCHLORPHENIRAMINE MALEATE

REACTIONS (3)
  - Dyspnoea [Recovered/Resolved]
  - Tremor [Recovered/Resolved]
  - Angioedema [Recovered/Resolved]

NARRATIVE: CASE EVENT DATE: 20210525
